FAERS Safety Report 8090438-6 (Version None)
Quarter: 2012Q1

REPORT INFORMATION
  Report Type: 
  Country: None (occurrence: None)
  Receive Date: 20120129
  Receipt Date: 20111129
  Transmission Date: 20120608
  Serious: No
  Sender: FDA-Public Use
  Company Number: US-ABBOTT-11P-163-0879934-00

PATIENT
  Sex: Female
  Weight: 79.904 kg

DRUGS (2)
  1. HUMIRA [Suspect]
     Indication: RHEUMATOID ARTHRITIS
     Dates: start: 20100101
  2. HUMIRA [Suspect]
     Indication: PSORIASIS
     Dates: start: 20111107

REACTIONS (5)
  - GUTTATE PSORIASIS [None]
  - PSORIASIS [None]
  - HYPERTENSION [None]
  - SKIN EXFOLIATION [None]
  - SYSTEMIC LUPUS ERYTHEMATOSUS [None]
